FAERS Safety Report 7974830-3 (Version None)
Quarter: 2011Q4

REPORT INFORMATION
  Report Type: 
  Country: None (occurrence: None)
  Receive Date: 20111213
  Receipt Date: 20111202
  Transmission Date: 20120403
  Serious: Yes (Hospitalization)
  Sender: FDA-Public Use
  Company Number: US-US-EMD SERONO, INC.-7099773

PATIENT
  Sex: Female

DRUGS (1)
  1. REBIF [Suspect]
     Indication: PRODUCT USED FOR UNKNOWN INDICATION
     Route: 058
     Dates: start: 20110131

REACTIONS (4)
  - LACRIMAL DISORDER [None]
  - INJECTION SITE ERYTHEMA [None]
  - PYREXIA [None]
  - CENTRAL NERVOUS SYSTEM LESION [None]
